FAERS Safety Report 25169183 (Version 1)
Quarter: 2025Q2

REPORT INFORMATION
  Report Type: Spontaneous
  Country: US (occurrence: US)
  Receive Date: 20250407
  Receipt Date: 20250407
  Transmission Date: 20250717
  Serious: No
  Sender: ALEXION PHARMACEUTICALS
  Company Number: US-AstraZeneca-CH-00794256A

PATIENT

DRUGS (1)
  1. BYETTA [Suspect]
     Active Substance: EXENATIDE
     Route: 065

REACTIONS (2)
  - Product use issue [Not Recovered/Not Resolved]
  - Malaise [Unknown]
